FAERS Safety Report 10811975 (Version 1)
Quarter: 2015Q1

REPORT INFORMATION
  Report Type: Report from Study
  Country: BR (occurrence: BR)
  Receive Date: 20150217
  Receipt Date: 20150217
  Transmission Date: 20150721
  Serious: Yes (Other)
  Sender: FDA-Public Use
  Company Number: BR-ABBVIE-15K-020-1346136-00

PATIENT
  Age: 42 Year
  Sex: Female
  Weight: 61 kg

DRUGS (2)
  1. HUMIRA [Suspect]
     Active Substance: ADALIMUMAB
     Indication: RHEUMATOID ARTHRITIS
     Route: 058
     Dates: start: 201307, end: 201311
  2. PREDNISONE. [Concomitant]
     Active Substance: PREDNISONE
     Indication: ARTHRALGIA
     Route: 048

REACTIONS (3)
  - Overweight [Recovered/Resolved]
  - Drug ineffective [Not Recovered/Not Resolved]
  - Tendon rupture [Recovering/Resolving]

NARRATIVE: CASE EVENT DATE: 201403
